FAERS Safety Report 12308870 (Version 1)
Quarter: 2016Q2

REPORT INFORMATION
  Report Type: Spontaneous
  Country: FR (occurrence: FR)
  Receive Date: 20160427
  Receipt Date: 20160427
  Transmission Date: 20160815
  Serious: Yes (Hospitalization)
  Sender: FDA-Public Use
  Company Number: FR-ASTRAZENECA-2016SE43744

PATIENT
  Age: 21963 Day
  Sex: Male

DRUGS (7)
  1. KARDGEIC [Concomitant]
  2. CARDENSIEL [Concomitant]
     Active Substance: BISOPROLOL FUMARATE
     Dates: start: 20160211
  3. CRESTOR [Suspect]
     Active Substance: ROSUVASTATIN CALCIUM
     Route: 048
     Dates: start: 20160211, end: 20160317
  4. PLAVIX [Concomitant]
     Active Substance: CLOPIDOGREL BISULFATE
  5. INEIXUM [Concomitant]
  6. TRIATEC [Suspect]
     Active Substance: RAMIPRIL
     Route: 048
     Dates: start: 20160211, end: 20160318
  7. AMOXICILLIN. [Suspect]
     Active Substance: AMOXICILLIN
     Indication: LUNG DISORDER
     Dosage: NON AZ
     Route: 048
     Dates: start: 20160227, end: 20160317

REACTIONS (2)
  - Drug reaction with eosinophilia and systemic symptoms [Recovered/Resolved]
  - Lung disorder [Unknown]

NARRATIVE: CASE EVENT DATE: 20160311
